FAERS Safety Report 4888518-9 (Version None)
Quarter: 2005Q4

REPORT INFORMATION
  Report Type: 
  Country: None (occurrence: None)
  Receive Date: 20051215
  Receipt Date: 20050425
  Transmission Date: 20060501
  Serious: Yes (Other)
  Sender: FDA-Public Use
  Company Number: 2005066237

PATIENT
  Age: 77 Year
  Sex: Male
  Weight: 95.2554 kg

DRUGS (2)
  1. BEXTRA [Suspect]
     Indication: ILL-DEFINED DISORDER
     Dosage: 10 MG (10 MG, 1 IN 1 D), ORAL
     Route: 048
     Dates: start: 20050101
  2. GLYCERYL TRINITRATE (GLYCERYL TRINITRATE) [Concomitant]

REACTIONS (2)
  - CHEST PAIN [None]
  - HYPOAESTHESIA [None]
